FAERS Safety Report 22366156 (Version 1)
Quarter: 2023Q2

REPORT INFORMATION
  Report Type: Report from Study
  Country: CO (occurrence: CO)
  Receive Date: 20230525
  Receipt Date: 20230525
  Transmission Date: 20230721
  Serious: Yes (Hospitalization)
  Sender: FDA-Public Use
  Company Number: CO-ASTELLAS-2023US015892

PATIENT
  Age: 48 Year
  Sex: Female

DRUGS (1)
  1. TACROLIMUS [Suspect]
     Active Substance: TACROLIMUS
     Indication: Heart transplant
     Route: 048
     Dates: start: 20160510

REACTIONS (4)
  - Nausea [Not Recovered/Not Resolved]
  - Chest pain [Not Recovered/Not Resolved]
  - Choking sensation [Not Recovered/Not Resolved]
  - Malaise [Not Recovered/Not Resolved]

NARRATIVE: CASE EVENT DATE: 20230508
